FAERS Safety Report 9161040 (Version 1)
Quarter: 2013Q1

REPORT INFORMATION
  Report Type: Spontaneous
  Country: JP (occurrence: JP)
  Receive Date: 20130313
  Receipt Date: 20130313
  Transmission Date: 20140127
  Serious: Yes (Other)
  Sender: FDA-Public Use
  Company Number: JP-BRISTOL-MYERS SQUIBB COMPANY-17474107

PATIENT
  Sex: 0

DRUGS (1)
  1. ABILIFY TABS [Suspect]
     Route: 065

REACTIONS (1)
  - Mania [Unknown]
